FAERS Safety Report 18551871 (Version 1)
Quarter: 2020Q4

REPORT INFORMATION
  Report Type: Spontaneous
  Country: MY (occurrence: MY)
  Receive Date: 20201126
  Receipt Date: 20201126
  Transmission Date: 20210114
  Serious: Yes (Other)
  Sender: FDA-Public Use
  Company Number: MY-AMGEN-MYSSP2020193073

PATIENT
  Sex: Female

DRUGS (7)
  1. PASURTA [Suspect]
     Active Substance: ERENUMAB
     Dosage: 70 MG, UNKNOWN
     Route: 065
  2. PASURTA [Suspect]
     Active Substance: ERENUMAB
     Dosage: 70 MG, UNKNOWN
     Route: 065
  3. PASURTA [Suspect]
     Active Substance: ERENUMAB
     Dosage: 70 MG, UNKNOWN
     Route: 065
  4. PASURTA [Suspect]
     Active Substance: ERENUMAB
     Dosage: 70 MG, UNKNOWN
     Route: 065
  5. PASURTA [Suspect]
     Active Substance: ERENUMAB
     Indication: PRODUCT USED FOR UNKNOWN INDICATION
     Dosage: 70 MG, UNKNOWN
     Route: 065
  6. PASURTA [Suspect]
     Active Substance: ERENUMAB
     Dosage: 70 MG, UNKNOWN
     Route: 065
  7. PASURTA [Suspect]
     Active Substance: ERENUMAB
     Dosage: 70 MG, UNKNOWN
     Route: 065

REACTIONS (1)
  - Lymphoma [Unknown]
